FAERS Safety Report 8014083-3 (Version None)
Quarter: 2011Q4

REPORT INFORMATION
  Report Type: 
  Country: None (occurrence: None)
  Receive Date: 20111229
  Receipt Date: 20111222
  Transmission Date: 20120403
  Serious: Yes (Other)
  Sender: FDA-Public Use
  Company Number: GB-ABBOTT-11P-167-0886583-00

PATIENT
  Age: 40 Year
  Sex: Female

DRUGS (2)
  1. LORAZEPAM [Concomitant]
     Indication: PHOBIA OF FLYING
     Route: 048
     Dates: start: 20111112, end: 20111112
  2. PROSTAP SR [Suspect]
     Indication: ENDOMETRIOSIS
     Route: 030
     Dates: start: 20110901, end: 20111103

REACTIONS (4)
  - DISSOCIATION [None]
  - ARTHRALGIA [None]
  - DEJA VU [None]
  - VISUAL IMPAIRMENT [None]
